FAERS Safety Report 5064402-5 (Version None)
Quarter: 2006Q3

REPORT INFORMATION
  Report Type: 
  Country: None (occurrence: None)
  Receive Date: 20060726
  Receipt Date: 20060712
  Transmission Date: 20061208
  Serious: Yes (Death)
  Sender: FDA-Public Use
  Company Number: 2005103484

PATIENT
  Age: 76 Year
  Sex: Male

DRUGS (15)
  1. NEURONTIN [Suspect]
     Indication: NEUROPATHY PERIPHERAL
  2. MORPHINE [Concomitant]
  3. PLETAL (CILOSTAZOL) [Concomitant]
  4. PROZAC [Concomitant]
  5. DEPAKOTE [Concomitant]
  6. OXYCONTIN [Concomitant]
  7. LANOXIN [Concomitant]
  8. COLCHICUM JTL LIQ [Concomitant]
  9. SYNTHROID [Concomitant]
  10. RANITIDINE [Concomitant]
  11. CARISOPRODOL [Concomitant]
  12. ALLOPURINOL [Concomitant]
  13. ACCUPRIL [Concomitant]
  14. DURAGESIC-100 [Concomitant]
  15. ASPIRIN [Concomitant]

REACTIONS (4)
  - COMPLETED SUICIDE [None]
  - DRUG INEFFECTIVE [None]
  - GUN SHOT WOUND [None]
  - PAIN [None]
